FAERS Safety Report 5333998-8 (Version None)
Quarter: 2007Q2

REPORT INFORMATION
  Report Type: 
  Country: None (occurrence: None)
  Receive Date: 20070524
  Receipt Date: 20070522
  Transmission Date: 20071010
  Serious: Yes (Other)
  Sender: FDA-Public Use
  Company Number: FRWYE711323MAY07

PATIENT
  Age: 46 Year
  Sex: Male

DRUGS (1)
  1. TYGACIL [Suspect]
     Indication: SEPSIS
     Dosage: UNKNOWN; REPORTED AS USUAL DOSE
     Route: 042
     Dates: start: 20070202, end: 20070204

REACTIONS (4)
  - CONDITION AGGRAVATED [None]
  - NEUTROPHIL COUNT DECREASED [None]
  - PLATELET COUNT DECREASED [None]
  - WHITE BLOOD CELL COUNT DECREASED [None]
